FAERS Safety Report 6895822-1 (Version None)
Quarter: 2010Q3

REPORT INFORMATION
  Report Type: 
  Country: None (occurrence: None)
  Receive Date: 20100802
  Receipt Date: 20100721
  Transmission Date: 20110219
  Serious: Yes (Hospitalization, Other)
  Sender: FDA-Public Use
  Company Number: US-PFIZER INC-2010073617

PATIENT
  Age: 42 Year
  Sex: Male
  Weight: 99.79 kg

DRUGS (2)
  1. LYRICA [Suspect]
     Dosage: 300 MG, 3X/DAY
  2. OXYCONTIN [Concomitant]
     Indication: BACK PAIN
     Dosage: 80 MG, 3X/DAY

REACTIONS (3)
  - AGITATION [None]
  - CONFUSIONAL STATE [None]
  - DRUG ABUSE [None]
